FAERS Safety Report 4441226-0 (Version None)
Quarter: 2004Q3

REPORT INFORMATION
  Report Type: 
  Country: None (occurrence: None)
  Receive Date: 20040728
  Receipt Date: 20040401
  Transmission Date: 20050211
  Serious: No
  Sender: FDA-Public Use
  Company Number: USA040463862

PATIENT
  Age: 54 Year
  Sex: Female

DRUGS (4)
  1. STRATTERA [Suspect]
     Indication: ATTENTION DEFICIT/HYPERACTIVITY DISORDER
     Dosage: 18 MG DAY
     Dates: start: 20040304, end: 20040314
  2. IMURAN [Concomitant]
  3. ESTROGEN NOS [Concomitant]
  4. PROGESTERONE [Concomitant]

REACTIONS (4)
  - HEADACHE [None]
  - NAUSEA [None]
  - SLEEP DISORDER [None]
  - VISUAL ACUITY REDUCED [None]
